FAERS Safety Report 17008929 (Version 1)
Quarter: 2019Q4

REPORT INFORMATION
  Report Type: Spontaneous
  Country: US (occurrence: US)
  Receive Date: 20190930
  Receipt Date: 20190930
  Transmission Date: 20200122
  Serious: No
  Sender: FDA-Public Use
  Company Number: None

PATIENT
  Age: 56 Year
  Sex: Female

DRUGS (1)
  1. GENVOYA [Suspect]
     Active Substance: COBICISTAT\ELVITEGRAVIR\EMTRICITABINE\TENOFOVIR ALAFENAMIDE FUMARATE
     Dosage: ?          OTHER DOSE:GENVOYA;?
     Route: 048
     Dates: start: 201905, end: 201908

REACTIONS (5)
  - Anaphylactic reaction [None]
  - Scar [None]
  - Rash [None]
  - Urticaria [None]
  - Neuropathy peripheral [None]

NARRATIVE: CASE EVENT DATE: 20190930
